FAERS Safety Report 15336377 (Version 19)
Quarter: 2020Q3

REPORT INFORMATION
  Report Type: Spontaneous
  Country: US (occurrence: US)
  Receive Date: 20180830
  Receipt Date: 20200806
  Transmission Date: 20201102
  Serious: Yes (Other)
  Sender: FDA-Public Use
  Company Number: US-ACTELION-A-NJ2018-177616

PATIENT
  Age: 67 Year
  Sex: Female
  Weight: 72.56 kg

DRUGS (9)
  1. UPTRAVI [Suspect]
     Active Substance: SELEXIPAG
     Dosage: 1000 MCG, BID
     Route: 048
  2. UPTRAVI [Suspect]
     Active Substance: SELEXIPAG
     Dosage: 200 MCG, BID
     Route: 048
     Dates: start: 201808
  3. OPSUMIT [Suspect]
     Active Substance: MACITENTAN
     Indication: PULMONARY ARTERIAL HYPERTENSION
     Dosage: 10 MG, QD
     Route: 048
  4. ADEMPAS [Concomitant]
     Active Substance: RIOCIGUAT
  5. UPTRAVI [Suspect]
     Active Substance: SELEXIPAG
     Dosage: 800 MCG, BID
     Route: 048
  6. UPTRAVI [Suspect]
     Active Substance: SELEXIPAG
     Dosage: 1800 UNK
     Route: 048
  7. UPTRAVI [Suspect]
     Active Substance: SELEXIPAG
     Indication: PULMONARY ARTERIAL HYPERTENSION
     Dosage: 1600 MCG, BID
     Route: 048
  8. OPSUMIT [Suspect]
     Active Substance: MACITENTAN
     Dosage: 10 MG, QD
     Route: 048
  9. IRON [Concomitant]
     Active Substance: IRON

REACTIONS (37)
  - Neck injury [Unknown]
  - Product dose omission issue [Unknown]
  - Vitamin B12 deficiency [Unknown]
  - Oxygen saturation decreased [Unknown]
  - Loss of consciousness [Unknown]
  - Arthralgia [Unknown]
  - Fatigue [Unknown]
  - Contusion [Unknown]
  - Petit mal epilepsy [Unknown]
  - Fall [Unknown]
  - Alopecia [Unknown]
  - Pneumothorax [Unknown]
  - Laryngitis [Unknown]
  - Limb injury [Unknown]
  - Vitamin B12 increased [Unknown]
  - Shoulder operation [Unknown]
  - Unevaluable event [Unknown]
  - Peripheral swelling [Unknown]
  - Feeling abnormal [Unknown]
  - Anaemia [Unknown]
  - Disorientation [Unknown]
  - Myalgia [Unknown]
  - Decreased appetite [Unknown]
  - Road traffic accident [Unknown]
  - Headache [Unknown]
  - Haemoglobin decreased [Unknown]
  - Blood iron decreased [Unknown]
  - Influenza like illness [Unknown]
  - Dysphonia [Unknown]
  - Influenza [Unknown]
  - Sinusitis [Unknown]
  - Hypotension [Unknown]
  - Knee operation [Unknown]
  - Respiratory depression [Unknown]
  - Narcolepsy [Unknown]
  - Arthritis [Unknown]
  - Haematocrit decreased [Unknown]

NARRATIVE: CASE EVENT DATE: 20180811
